FAERS Safety Report 22250131 (Version 1)
Quarter: 2023Q2

REPORT INFORMATION
  Report Type: Spontaneous
  Country: US (occurrence: None)
  Receive Date: 20230422
  Receipt Date: 20230422
  Transmission Date: 20230722
  Serious: No
  Sender: FDA-Public Use
  Company Number: None

PATIENT
  Sex: Female
  Weight: 64.41 kg

DRUGS (4)
  1. CAPECITABINE [Suspect]
     Active Substance: CAPECITABINE
     Indication: Rectal cancer
     Dosage: FREQUENCY : TWICE A DAY;?
     Route: 048
     Dates: start: 20230227
  2. CALCIUM [Concomitant]
     Active Substance: CALCIUM
  3. CRESTOR [Concomitant]
  4. VITAMIN D3 [Concomitant]

REACTIONS (2)
  - COVID-19 [None]
  - Nasopharyngitis [None]
